FAERS Safety Report 4970100-6 (Version None)
Quarter: 2006Q2

REPORT INFORMATION
  Report Type: 
  Country: None (occurrence: None)
  Receive Date: 20060406
  Receipt Date: 20060320
  Transmission Date: 20061013
  Serious: Yes (Hospitalization, Other)
  Sender: FDA-Public Use
  Company Number: US200511001376

PATIENT
  Age: 40 Year
  Sex: Female
  Weight: 126.5 kg

DRUGS (3)
  1. ZYPREXA [Suspect]
     Dosage: ORAL
     Route: 048
     Dates: start: 20030301, end: 20030401
  2. BUPROPION HCL [Concomitant]
  3. FLUOXETINE HCL [Concomitant]

REACTIONS (11)
  - AMNESIA [None]
  - ANXIETY [None]
  - CONFUSIONAL STATE [None]
  - DIABETES MELLITUS NON-INSULIN-DEPENDENT [None]
  - DIABETIC COMA [None]
  - DIABETIC KETOACIDOSIS [None]
  - FEAR [None]
  - INSOMNIA [None]
  - PHOBIA [None]
  - RESPIRATORY FAILURE [None]
  - SOCIAL AVOIDANT BEHAVIOUR [None]
